FAERS Safety Report 11992909 (Version 1)
Quarter: 2016Q1

REPORT INFORMATION
  Report Type: Spontaneous
  Country: US (occurrence: US)
  Receive Date: 20160203
  Receipt Date: 20160203
  Transmission Date: 20160526
  Serious: No
  Sender: FDA-Public Use
  Company Number: US-UCBSA-2015021497

PATIENT
  Age: 28 Year
  Sex: Female

DRUGS (8)
  1. PROPOFOL. [Concomitant]
     Active Substance: PROPOFOL
     Indication: STATUS EPILEPTICUS
     Dosage: UNKNOWN DOSE
  2. LEVETIRACETAM. [Suspect]
     Active Substance: LEVETIRACETAM
     Indication: STATUS EPILEPTICUS
     Dosage: 1500 MG, 2X/DAY (BID)
     Route: 042
  3. LORAZEPAM. [Concomitant]
     Active Substance: LORAZEPAM
     Dosage: ANOTHER DOSE OF 2 MG
     Route: 042
  4. MIDAZOLAM [Concomitant]
     Active Substance: MIDAZOLAM\MIDAZOLAM HYDROCHLORIDE
     Dosage: UNKNOWN DOSE
  5. FOSPHENYTOIN [Concomitant]
     Active Substance: FOSPHENYTOIN\FOSPHENYTOIN SODIUM
     Indication: STATUS EPILEPTICUS
     Dosage: 1500 MG LOADING DOSE
     Route: 042
  6. LEVETIRACETAM. [Suspect]
     Active Substance: LEVETIRACETAM
     Indication: OFF LABEL USE
  7. LORAZEPAM. [Concomitant]
     Active Substance: LORAZEPAM
     Indication: STATUS EPILEPTICUS
     Dosage: TWO INTRAVENOUS BOLUS DOSES OF 2 MG
     Route: 040
  8. MIDAZOLAM [Concomitant]
     Active Substance: MIDAZOLAM\MIDAZOLAM HYDROCHLORIDE
     Indication: STATUS EPILEPTICUS
     Dosage: 4 MG THREE DOSES
     Route: 042

REACTIONS (2)
  - Drug ineffective for unapproved indication [Unknown]
  - Off label use [Unknown]
